FAERS Safety Report 22291747 (Version 1)
Quarter: 2023Q2

REPORT INFORMATION
  Report Type: Spontaneous
  Country: US (occurrence: None)
  Receive Date: 20230505
  Receipt Date: 20230505
  Transmission Date: 20230722
  Serious: Yes (Other)
  Sender: FDA-Public Use
  Company Number: None

PATIENT
  Age: 73 Year
  Sex: Male
  Weight: 85.5 kg

DRUGS (6)
  1. METOPROLOL SUCCINATE [Suspect]
     Active Substance: METOPROLOL SUCCINATE
     Indication: Heart rate abnormal
     Dosage: OTHER QUANTITY : 1 TABLET(S);?
     Route: 048
  2. ELIQUIS [Concomitant]
     Active Substance: APIXABAN
  3. ALLOPURINOL [Concomitant]
     Active Substance: ALLOPURINOL
  4. ATORVASTATIN [Concomitant]
     Active Substance: ATORVASTATIN
  5. ALFUZOSIN [Concomitant]
     Active Substance: ALFUZOSIN
  6. ASPIRIN [Concomitant]
     Active Substance: ASPIRIN

REACTIONS (3)
  - Heart rate decreased [None]
  - Recalled product administered [None]
  - Disease recurrence [None]

NARRATIVE: CASE EVENT DATE: 20230505
